FAERS Safety Report 9527078 (Version 1)
Quarter: 2013Q3

REPORT INFORMATION
  Report Type: Spontaneous
  Country: US (occurrence: US)
  Receive Date: 20130916
  Receipt Date: 20130916
  Transmission Date: 20140515
  Serious: No
  Sender: FDA-Public Use
  Company Number: US-TEVA-376892USA

PATIENT
  Age: 51 Year
  Sex: Male

DRUGS (4)
  1. FOLINIC ACID [Suspect]
     Indication: COLORECTAL CANCER METASTATIC
     Dosage: CYCLIC - 1 DAY
     Route: 042
  2. ZIV-AFLIBERCEPT (ZALTRAP) [Suspect]
     Indication: COLORECTAL CANCER METASTATIC
     Dosage: CYCLIC - 1 DAY
     Route: 042
  3. FLUOROURACIL [Suspect]
     Indication: COLORECTAL CANCER METASTATIC
     Dosage: CYCLIC
     Route: 042
  4. IRINOTECAN [Suspect]
     Indication: COLORECTAL CANCER METASTATIC
     Dosage: CYCLIC - 1 DAY
     Route: 042

REACTIONS (1)
  - Drug ineffective [Unknown]
